FAERS Safety Report 7345645-4 (Version None)
Quarter: 2011Q1

REPORT INFORMATION
  Report Type: 
  Country: None (occurrence: None)
  Receive Date: 20110310
  Receipt Date: 20110302
  Transmission Date: 20110831
  Serious: Yes (Death, Hospitalization)
  Sender: FDA-Public Use
  Company Number: B0421357A

PATIENT
  Sex: Female

DRUGS (6)
  1. CORTRIL [Concomitant]
     Route: 048
  2. FUROSEMIDE [Concomitant]
     Route: 042
  3. SILDENAFIL CITRATE [Concomitant]
     Route: 048
  4. FULCALIQ [Concomitant]
     Route: 042
  5. FLOLAN [Suspect]
     Indication: PULMONARY THROMBOSIS
     Route: 042
     Dates: start: 20040310, end: 20080915
  6. ALBUMIN (HUMAN) [Concomitant]
     Route: 042

REACTIONS (11)
  - WEIGHT INCREASED [None]
  - DECREASED APPETITE [None]
  - RIGHT VENTRICULAR FAILURE [None]
  - ISOLATED ADRENOCORTICOTROPIC HORMONE DEFICIENCY [None]
  - HYPONATRAEMIA [None]
  - GAMMA-GLUTAMYLTRANSFERASE INCREASED [None]
  - HYPOALBUMINAEMIA [None]
  - DIARRHOEA [None]
  - CELLULITIS [None]
  - GENERALISED OEDEMA [None]
  - CONVULSION [None]
